FAERS Safety Report 5057643-4 (Version None)
Quarter: 2006Q2

REPORT INFORMATION
  Report Type: 
  Country: None (occurrence: None)
  Receive Date: 20060622
  Receipt Date: 20060109
  Transmission Date: 20061013
  Serious: Yes (Disabling)
  Sender: FDA-Public Use
  Company Number: US-JNJFOC-20050905703

PATIENT
  Age: 52 Year
  Sex: Female

DRUGS (2)
  1. DURAGESIC-100 [Suspect]
     Indication: PAIN
     Dosage: 75 UG/HR, 1 IN 48 HOUR, TRANSDERMAL
     Route: 062
     Dates: start: 20040101, end: 20050201
  2. DURAGESIC-100 [Suspect]
     Indication: PAIN
     Dosage: 75 UG/HR, 1 IN 48 HOUR, TRANSDERMAL
     Route: 062
     Dates: start: 20050101

REACTIONS (9)
  - APPLICATION SITE ERYTHEMA [None]
  - APPLICATION SITE IRRITATION [None]
  - APPLICATION SITE PRURITUS [None]
  - COMPLEX REGIONAL PAIN SYNDROME [None]
  - DEHYDRATION [None]
  - DRUG INEFFECTIVE [None]
  - HYPOTENSION [None]
  - INJURY [None]
  - OSTEOPOROSIS [None]
